FAERS Safety Report 5472625-6 (Version None)
Quarter: 2007Q4

REPORT INFORMATION
  Report Type: 
  Country: None (occurrence: None)
  Receive Date: 20071001
  Receipt Date: 20060808
  Transmission Date: 20080405
  Serious: No
  Sender: FDA-Public Use
  Company Number: US-ASTRAZENECA-2006UW15799

PATIENT
  Age: 43 Year
  Sex: Female

DRUGS (2)
  1. ARIMIDEX [Suspect]
     Indication: BREAST CANCER FEMALE
     Route: 048
     Dates: start: 20020101
  2. LEXAPRO [Concomitant]

REACTIONS (5)
  - ASTHENOPIA [None]
  - DIZZINESS [None]
  - FEELING ABNORMAL [None]
  - MYALGIA [None]
  - VISUAL BRIGHTNESS [None]
